FAERS Safety Report 9565204 (Version 3)
Quarter: 2013Q4

REPORT INFORMATION
  Report Type: Report from Study
  Country: PR (occurrence: PR)
  Receive Date: 20130930
  Receipt Date: 20131119
  Transmission Date: 20140711
  Serious: Yes (Hospitalization, Other)
  Sender: FDA-Public Use
  Company Number: PR-ABBVIE-13P-131-1151057-00

PATIENT
  Age: 75 Year
  Sex: Female
  Weight: 49.03 kg

DRUGS (8)
  1. HUMIRA [Suspect]
     Indication: PRODUCT USED FOR UNKNOWN INDICATION
     Route: 058
     Dates: start: 2004, end: 20130829
  2. HUMIRA [Suspect]
     Route: 058
     Dates: start: 20130922
  3. ATENOLOL [Concomitant]
     Indication: HYPERTENSION
     Route: 048
  4. AMLODIPINO [Concomitant]
     Indication: HYPERTENSION
     Route: 048
  5. SEPIA [Concomitant]
     Indication: BLOOD CHOLESTEROL INCREASED
     Route: 048
  6. FOLIC ACID [Concomitant]
     Indication: VITAMIN SUPPLEMENTATION
     Route: 048
  7. OMEGA 3 [Concomitant]
     Indication: SUPPLEMENTATION THERAPY
     Route: 048
  8. CALCIUM [Concomitant]
     Indication: MINERAL SUPPLEMENTATION
     Route: 048

REACTIONS (1)
  - Nephrolithiasis [Recovered/Resolved]
